FAERS Safety Report 6235604-7 (Version None)
Quarter: 2009Q2

REPORT INFORMATION
  Report Type: 
  Country: None (occurrence: None)
  Receive Date: 20090618
  Receipt Date: 20090609
  Transmission Date: 20091009
  Serious: Yes (Other)
  Sender: FDA-Public Use
  Company Number: US-AMGEN-QUU350982

PATIENT
  Sex: Male

DRUGS (1)
  1. ENBREL [Suspect]
     Indication: PSORIATIC ARTHROPATHY
     Route: 058

REACTIONS (8)
  - ARTHRALGIA [None]
  - BACK PAIN [None]
  - NAIL DISCOLOURATION [None]
  - NAIL DISORDER [None]
  - NAIL PITTING [None]
  - PAIN IN EXTREMITY [None]
  - PSORIASIS [None]
  - TUBERCULIN TEST POSITIVE [None]
